FAERS Safety Report 9166273 (Version 2)
Quarter: 2013Q2

REPORT INFORMATION
  Report Type: Spontaneous
  Country: US (occurrence: US)
  Receive Date: 20130315
  Receipt Date: 20130403
  Transmission Date: 20140414
  Serious: Yes (Other)
  Sender: FDA-Public Use
  Company Number: US-ASTRAZENECA-2013SE15457

PATIENT
  Age: 68 Year
  Sex: Female
  Weight: 66.7 kg

DRUGS (6)
  1. OMEPRAZOLE [Suspect]
     Dosage: 20 PRN
     Route: 048
  2. CRESTOR [Suspect]
     Indication: HYPERLIPIDAEMIA
     Route: 048
     Dates: start: 20130124, end: 20130223
  3. CRESTOR [Suspect]
     Indication: CORONARY ARTERY DISEASE
     Route: 048
     Dates: start: 20130124, end: 20130223
  4. LOSARTIN/HCTZ [Concomitant]
     Dosage: 12.5
  5. CORVADIL [Concomitant]
     Dosage: 25 BID
  6. COQ10 [Concomitant]

REACTIONS (1)
  - Rhabdomyolysis [Recovered/Resolved]
